FAERS Safety Report 6926031-5 (Version None)
Quarter: 2010Q3

REPORT INFORMATION
  Report Type: 
  Country: None (occurrence: None)
  Receive Date: 20100816
  Receipt Date: 20100811
  Transmission Date: 20110219
  Serious: Yes (Other)
  Sender: FDA-Public Use
  Company Number: US-BRISTOL-MYERS SQUIBB COMPANY-15215338

PATIENT
  Sex: Female

DRUGS (1)
  1. HYDREA [Suspect]
     Indication: ESSENTIAL THROMBOCYTHAEMIA
     Dosage: HYDREA TABS 500MG: 2TABS TID. 6TABS TID FOR 6 MONTHS 3 TABS TID TILL PAST YEAR
     Dates: start: 19860101

REACTIONS (2)
  - HAEMATOMA [None]
  - HAEMORRHAGE [None]
